FAERS Safety Report 22988361 (Version 2)
Quarter: 2023Q4

REPORT INFORMATION
  Report Type: Spontaneous
  Country: CA (occurrence: CA)
  Receive Date: 20230926
  Receipt Date: 20231101
  Transmission Date: 20240110
  Serious: Yes (Hospitalization)
  Sender: FDA-Public Use
  Company Number: CA-VER-202300394

PATIENT

DRUGS (1)
  1. TRIPTORELIN PAMOATE [Suspect]
     Active Substance: TRIPTORELIN PAMOATE
     Indication: Product used for unknown indication
     Dosage: (11.25 MG)
     Route: 065

REACTIONS (5)
  - Body temperature increased [Unknown]
  - Hallucination [Unknown]
  - Hospitalisation [Unknown]
  - Muscular weakness [Unknown]
  - Drug hypersensitivity [Unknown]
